FAERS Safety Report 19761770 (Version 1)
Quarter: 2021Q3

REPORT INFORMATION
  Report Type: Report from Study
  Country: EE (occurrence: EE)
  Receive Date: 20210830
  Receipt Date: 20210830
  Transmission Date: 20211014
  Serious: Yes (Other)
  Sender: FDA-Public Use
  Company Number: NVSC2021EE187751

PATIENT
  Age: 5 Year
  Sex: Male
  Weight: 17.7 kg

DRUGS (1)
  1. DABRAFENIB [Suspect]
     Active Substance: DABRAFENIB
     Indication: ASTROCYTOMA MALIGNANT
     Dosage: 30 MG, BID
     Route: 048
     Dates: start: 20210811, end: 20210814

REACTIONS (5)
  - Mental disorder [Recovered/Resolved]
  - Haematocrit decreased [Unknown]
  - Vomiting [Recovered/Resolved]
  - Somnolence [Recovered/Resolved]
  - White blood cell count increased [Unknown]

NARRATIVE: CASE EVENT DATE: 20210815
